FAERS Safety Report 21650506 (Version 1)
Quarter: 2022Q4

REPORT INFORMATION
  Report Type: Spontaneous
  Country: US (occurrence: None)
  Receive Date: 20221124
  Receipt Date: 20221124
  Transmission Date: 20230113
  Serious: Yes (Other)
  Sender: FDA-Public Use
  Company Number: None

PATIENT
  Age: 34 Year
  Sex: Female
  Weight: 62 kg

DRUGS (1)
  1. FOSAPREPITANT [Suspect]
     Active Substance: FOSAPREPITANT
     Indication: Prophylaxis of nausea and vomiting
     Route: 042
     Dates: start: 20221121, end: 20221121

REACTIONS (5)
  - Infusion related reaction [None]
  - Lip swelling [None]
  - Flushing [None]
  - Feeling hot [None]
  - Dizziness [None]

NARRATIVE: CASE EVENT DATE: 20221121
